FAERS Safety Report 25947954 (Version 2)
Quarter: 2025Q4

REPORT INFORMATION
  Report Type: Report from Study
  Country: CA (occurrence: CA)
  Receive Date: 20251022
  Receipt Date: 20251119
  Transmission Date: 20260117
  Serious: Yes (Other)
  Sender: NOVARTIS
  Company Number: CA-002147023-NVSC2025CA127524

PATIENT
  Age: 52 Year
  Sex: Male

DRUGS (2)
  1. COSENTYX [Suspect]
     Active Substance: SECUKINUMAB
     Indication: Psoriatic arthropathy
     Dosage: 150 MG, QW (WEEKS 0, 1, 2, 3, AND 4)
     Route: 058
     Dates: start: 20250806
  2. COSENTYX [Suspect]
     Active Substance: SECUKINUMAB
     Indication: Psoriasis
     Dosage: 150 MG, QMO
     Route: 058

REACTIONS (8)
  - Pneumonia [Recovered/Resolved]
  - Thrombosis [Recovered/Resolved]
  - Respiratory disorder [Unknown]
  - Productive cough [Unknown]
  - Drug effect less than expected [Unknown]
  - Psoriasis [Not Recovered/Not Resolved]
  - Joint swelling [Unknown]
  - Swollen joint count increased [Unknown]

NARRATIVE: CASE EVENT DATE: 20250811
